FAERS Safety Report 8307414-8 (Version None)
Quarter: 2012Q2

REPORT INFORMATION
  Report Type: 
  Country: None (occurrence: None)
  Receive Date: 20120424
  Receipt Date: 20120418
  Transmission Date: 20120825
  Serious: Yes (Hospitalization, Other)
  Sender: FDA-Public Use
  Company Number: US-PFIZER INC-2012096865

PATIENT
  Sex: Male
  Weight: 99.773 kg

DRUGS (8)
  1. REVATIO [Suspect]
     Indication: PULMONARY HYPERTENSION
     Dosage: 20 MG, 3X/DAY
     Route: 048
     Dates: start: 20120101, end: 20120101
  2. REVATIO [Suspect]
     Dosage: UNK
     Dates: start: 20120417
  3. SIMVASTATIN [Concomitant]
     Indication: BLOOD CHOLESTEROL INCREASED
     Dosage: UNK
  4. ASPIRIN [Concomitant]
     Indication: CARDIOVASCULAR DISORDER
     Dosage: 81 MG, UNK
  5. LISINOPRIL [Concomitant]
     Dosage: 40 MG, 2X/DAY
  6. LASIX [Concomitant]
     Dosage: 80MG IN THE MORNING AND 40MG IN THE EVENING
  7. LOPRESSOR [Concomitant]
     Indication: BLOOD PRESSURE ABNORMAL
     Dosage: 100 MG, 2X/DAY
  8. POTASSIUM [Concomitant]
     Dosage: UNK

REACTIONS (4)
  - PNEUMONIA [None]
  - BLOOD CREATININE INCREASED [None]
  - ATRIAL FLUTTER [None]
  - CHRONIC OBSTRUCTIVE PULMONARY DISEASE [None]
